FAERS Safety Report 8200310-6 (Version None)
Quarter: 2012Q1

REPORT INFORMATION
  Report Type: 
  Country: None (occurrence: None)
  Receive Date: 20120309
  Receipt Date: 20120309
  Transmission Date: 20120608
  Serious: Yes (Hospitalization, Disabling, Other)
  Sender: FDA-Public Use
  Company Number: None

PATIENT
  Age: 84 Year
  Sex: Male
  Weight: 92.9874 kg

DRUGS (1)
  1. OXYCODONE HCL [Suspect]
     Indication: BACK PAIN
     Dosage: 15 MG TAB EVERY 4 HR MOUTH
     Route: 048
     Dates: start: 20110906

REACTIONS (4)
  - DIZZINESS [None]
  - ABASIA [None]
  - FALL [None]
  - MUSCULOSKELETAL DISORDER [None]
